FAERS Safety Report 23393467 (Version 1)
Quarter: 2024Q1

REPORT INFORMATION
  Report Type: Spontaneous
  Country: DE (occurrence: DE)
  Receive Date: 20240111
  Receipt Date: 20240111
  Transmission Date: 20240410
  Serious: Yes (Hospitalization, Other)
  Sender: FDA-Public Use
  Company Number: DE-PFIZER INC-PV202400002328

PATIENT
  Age: 40 Year
  Sex: Male

DRUGS (2)
  1. COMIRNATY (TOZINAMERAN) [Suspect]
     Active Substance: TOZINAMERAN
     Indication: COVID-19 immunisation
     Dosage: DOSE 2, SINGLE
     Dates: start: 20210809
  2. CLINDAMYCIN HYDROCHLORIDE [Suspect]
     Active Substance: CLINDAMYCIN HYDROCHLORIDE
     Dosage: UNK, SINGLE
     Dates: start: 20211114

REACTIONS (17)
  - Interchange of vaccine products [Unknown]
  - Chronic spontaneous urticaria [Not Recovered/Not Resolved]
  - Autoinflammatory disease [Not Recovered/Not Resolved]
  - Angioedema [Unknown]
  - Peripheral swelling [Unknown]
  - Chills [Unknown]
  - Arthralgia [Unknown]
  - Sleep disorder [Unknown]
  - Pruritus [Unknown]
  - Skin burning sensation [Unknown]
  - Personality change [Unknown]
  - Post-traumatic stress disorder [Unknown]
  - Depression [Unknown]
  - Irritability [Unknown]
  - Aggression [Unknown]
  - Blood pressure abnormal [Unknown]
  - Inappropriate schedule of product administration [Unknown]

NARRATIVE: CASE EVENT DATE: 20211114
